FAERS Safety Report 20142801 (Version 2)
Quarter: 2021Q4

REPORT INFORMATION
  Report Type: Spontaneous
  Country: GB (occurrence: GB)
  Receive Date: 20211202
  Receipt Date: 20211208
  Transmission Date: 20220303
  Serious: Yes (Other)
  Sender: FDA-Public Use
  Company Number: GB-CELLTRION INC.-2021GB016137

PATIENT

DRUGS (1)
  1. INFLIXIMAB [Suspect]
     Active Substance: INFLIXIMAB
     Indication: Crohn^s disease
     Dosage: 120MG, FORTNIGHTLY (ROUTE: AS DIRECTED)
     Route: 058
     Dates: start: 20211110

REACTIONS (2)
  - COVID-19 [Unknown]
  - Circumstance or information capable of leading to medication error [Unknown]
